FAERS Safety Report 19071235 (Version 1)
Quarter: 2021Q1

REPORT INFORMATION
  Report Type: Spontaneous
  Country: US (occurrence: US)
  Receive Date: 20210330
  Receipt Date: 20210330
  Transmission Date: 20210420
  Serious: No
  Sender: FDA-Public Use
  Company Number: US-DRREDDYS-USA/USA/21/0133006

PATIENT
  Age: 16 Year
  Sex: Male

DRUGS (1)
  1. ZENATANE [Suspect]
     Active Substance: ISOTRETINOIN
     Indication: PRODUCT USED FOR UNKNOWN INDICATION
     Dosage: RMA ISSUE DATE:6/10/2020 8:39:55 AM,11/11/2020 2:25:41 PM,15/12/2020 3:35:46 PM,29/1/2021 1:51:07 PM
     Route: 048

REACTIONS (1)
  - Therapy cessation [Unknown]
